FAERS Safety Report 9970431 (Version 1)
Quarter: 2014Q1

REPORT INFORMATION
  Report Type: Spontaneous
  Country: US (occurrence: None)
  Receive Date: 20140304
  Receipt Date: 20140304
  Transmission Date: 20141002
  Serious: Yes (Other)
  Sender: FDA-Public Use
  Company Number: 2014P1001639

PATIENT
  Age: 76 Year
  Sex: Male

DRUGS (4)
  1. DIGOXIN [Suspect]
  2. TAMOXIFEN [Suspect]
  3. DILTIAZEM [Concomitant]
  4. WARFARIN [Concomitant]

REACTIONS (16)
  - Orthopnoea [None]
  - Cardiac murmur [None]
  - Venous pressure jugular increased [None]
  - Heart rate irregular [None]
  - Oedema [None]
  - Aortic stenosis [None]
  - Pleural effusion [None]
  - Renal mass [None]
  - Cardiac failure congestive [None]
  - Breast cancer metastatic [None]
  - Atrial fibrillation [None]
  - Cardiac failure [None]
  - Mental status changes [None]
  - Visual impairment [None]
  - Gastrointestinal disorder [None]
  - Drug interaction [None]
